FAERS Safety Report 10297969 (Version 2)
Quarter: 2014Q3

REPORT INFORMATION
  Report Type: Spontaneous
  Country: GB (occurrence: GB)
  Receive Date: 20140711
  Receipt Date: 20140711
  Transmission Date: 20150326
  Serious: Yes (Hospitalization)
  Sender: FDA-Public Use
  Company Number: GB-WATSON-2005B-00851

PATIENT
  Age: 81 Year
  Sex: Female

DRUGS (9)
  1. AZOPT [Concomitant]
     Active Substance: BRINZOLAMIDE
     Indication: GLAUCOMA
     Dosage: UNK, OPHT
     Route: 031
  2. CANDESARTAN [Concomitant]
     Active Substance: CANDESARTAN
     Indication: BLOOD PRESSURE INCREASED
     Dosage: 10 MG, DAILY (10 MG QD PO)
     Route: 048
  3. ASPIRIN. [Concomitant]
     Active Substance: ASPIRIN
     Indication: BLOOD PRESSURE INCREASED
     Dosage: 75 MG, DAILY 975 MG QD PO)
     Route: 048
  4. DILTIAZEM (UNKNOWN) [Suspect]
     Active Substance: DILTIAZEM
     Indication: HYPERTENSION
     Dosage: UNK, DAILY (3 OSITG QD PO)
     Route: 048
     Dates: end: 20050721
  5. SIMVASTATIN. [Concomitant]
     Active Substance: SIMVASTATIN
     Indication: HYPERCHOLESTEROLAEMIA
     Dosage: 20 MG, DAILY 920 MG QD PO)
     Route: 048
  6. CYCLOPENTOLATE HYDROCHLORIDE. [Concomitant]
     Active Substance: CYCLOPENTOLATE HYDROCHLORIDE
     Indication: GLAUCOMA
     Dosage: UNK, OPHT
     Route: 031
  7. ISOSORBIDE [Concomitant]
     Active Substance: ISOSORBIDE
     Indication: BLOOD PRESSURE INCREASED
     Dosage: 60 MG, DAILY (60 MG QD PO)
     Route: 048
  8. TRAVATAN [Concomitant]
     Active Substance: TRAVOPROST
     Indication: GLAUCOMA
     Dosage: UNK, OPHT
     Route: 031
  9. TIMOLOL (UNKNOWN) [Suspect]
     Active Substance: TIMOLOL
     Indication: HYPERTENSION
     Dosage: UNK, OPHT
     Route: 031
     Dates: end: 20050721

REACTIONS (1)
  - Bradycardia [Recovered/Resolved]
